FAERS Safety Report 9414530 (Version 1)
Quarter: 2013Q3

REPORT INFORMATION
  Report Type: Spontaneous
  Country: ES (occurrence: ES)
  Receive Date: 20130723
  Receipt Date: 20130723
  Transmission Date: 20140515
  Serious: Yes (Other)
  Sender: FDA-Public Use
  Company Number: ES-TEVA-419683ISR

PATIENT
  Age: 33 Year
  Sex: Female

DRUGS (1)
  1. PAROXETINE [Suspect]
     Route: 065

REACTIONS (2)
  - Angle closure glaucoma [Recovering/Resolving]
  - Visual acuity reduced [Recovering/Resolving]
